FAERS Safety Report 9579902 (Version 1)
Quarter: 2013Q3

REPORT INFORMATION
  Report Type: Spontaneous
  Country: US (occurrence: None)
  Receive Date: 20130930
  Receipt Date: 20130930
  Transmission Date: 20140515
  Serious: Yes (Hospitalization)
  Sender: FDA-Public Use
  Company Number: None

PATIENT
  Age: 50 Year
  Sex: Male
  Weight: 106.6 kg

DRUGS (2)
  1. MOVIPREP [Suspect]
     Indication: BOWEL PREPARATION
     Route: 048
     Dates: start: 20130926, end: 20130926
  2. MOVIPREP [Suspect]
     Indication: COLONOSCOPY
     Route: 048
     Dates: start: 20130926, end: 20130926

REACTIONS (6)
  - Rash [None]
  - Urticaria [None]
  - Pruritus [None]
  - Throat tightness [None]
  - Tremor [None]
  - Vomiting [None]
